FAERS Safety Report 7202304-6 (Version None)
Quarter: 2010Q4

REPORT INFORMATION
  Report Type: 
  Country: None (occurrence: None)
  Receive Date: 20101229
  Receipt Date: 20101220
  Transmission Date: 20110411
  Serious: Yes (Hospitalization)
  Sender: FDA-Public Use
  Company Number: BE-MEDIMMUNE-MEDI-0011967

PATIENT
  Sex: Female
  Weight: 3 kg

DRUGS (4)
  1. SYNAGIS [Suspect]
     Route: 030
     Dates: start: 20101103, end: 20101103
  2. GAVISCON [Concomitant]
     Route: 048
     Dates: start: 20101001
  3. PROTOVIT [Concomitant]
     Route: 048
  4. COLECALCIFEROL [Concomitant]

REACTIONS (2)
  - APNOEA [None]
  - OXYGEN SATURATION DECREASED [None]
